FAERS Safety Report 5299116-X (Version None)
Quarter: 2007Q2

REPORT INFORMATION
  Report Type: 
  Country: None (occurrence: None)
  Receive Date: 20070417
  Receipt Date: 20070410
  Transmission Date: 20071010
  Serious: Yes (Life-Threatening, Other)
  Sender: FDA-Public Use
  Company Number: GB-GLAXOSMITHKLINE-B0466499A

PATIENT
  Age: 32 Year
  Sex: Female
  Weight: 75 kg

DRUGS (1)
  1. RANITIDINE [Suspect]
     Indication: ANTACID THERAPY
     Route: 048
     Dates: start: 20070314

REACTIONS (3)
  - RASH GENERALISED [None]
  - THROAT TIGHTNESS [None]
  - URTICARIA [None]
